FAERS Safety Report 4441760-3 (Version None)
Quarter: 2004Q3

REPORT INFORMATION
  Report Type: 
  Country: None (occurrence: None)
  Receive Date: 20040907
  Receipt Date: 20040830
  Transmission Date: 20050211
  Serious: Yes (Death, Hospitalization)
  Sender: FDA-Public Use
  Company Number: PHBS2004ES11528

PATIENT
  Age: 46 Year
  Sex: Male

DRUGS (3)
  1. CYCLOSPORINE [Suspect]
     Indication: RENAL TRANSPLANT
     Route: 065
  2. AZATHIOPRINE [Suspect]
     Indication: RENAL TRANSPLANT
     Route: 065
  3. PREDNISONE [Suspect]
     Indication: RENAL TRANSPLANT
     Route: 065

REACTIONS (10)
  - ACUTE ABDOMEN [None]
  - ACUTE RESPIRATORY FAILURE [None]
  - COLECTOMY PARTIAL [None]
  - ENTERITIS [None]
  - LUNG INFILTRATION [None]
  - LUNG NEOPLASM [None]
  - MULTI-ORGAN FAILURE [None]
  - NOCARDIOSIS [None]
  - SKIN INFLAMMATION [None]
  - SKIN NODULE [None]
